FAERS Safety Report 13436620 (Version 1)
Quarter: 2017Q2

REPORT INFORMATION
  Report Type: Spontaneous
  Country: US (occurrence: US)
  Receive Date: 20170412
  Receipt Date: 20170412
  Transmission Date: 20170830
  Serious: No
  Sender: FDA-Public Use
  Company Number: US-SA-2016SA182205

PATIENT
  Age: 64 Year
  Sex: Female

DRUGS (1)
  1. ALLEGRA ALLERGY [Suspect]
     Active Substance: FEXOFENADINE HYDROCHLORIDE
     Route: 048

REACTIONS (7)
  - Sneezing [Unknown]
  - Lacrimation increased [Unknown]
  - Nasal pruritus [Unknown]
  - Expired product administered [Unknown]
  - Rhinorrhoea [Unknown]
  - Throat irritation [Unknown]
  - Extra dose administered [Unknown]
